FAERS Safety Report 12973066 (Version 2)
Quarter: 2017Q1

REPORT INFORMATION
  Report Type: Report from Study
  Country: US (occurrence: US)
  Receive Date: 20161124
  Receipt Date: 20170126
  Transmission Date: 20170428
  Serious: Yes (Hospitalization)
  Sender: FDA-Public Use
  Company Number: US-JNJFOC-20161119462

PATIENT
  Age: 32 Year
  Sex: Male
  Weight: 85 kg

DRUGS (7)
  1. APAP [Suspect]
     Active Substance: ACETAMINOPHEN
     Indication: EUPHORIC MOOD
     Route: 065
     Dates: start: 201611
  2. HYDROXYZINE [Suspect]
     Active Substance: HYDROXYZINE HYDROCHLORIDE
     Indication: EUPHORIC MOOD
     Route: 065
     Dates: start: 201611
  3. DIPHENHYDRAMINE HCL [Suspect]
     Active Substance: DIPHENHYDRAMINE HYDROCHLORIDE
     Indication: EUPHORIC MOOD
     Route: 065
     Dates: start: 201611
  4. CAFFEINE. [Suspect]
     Active Substance: CAFFEINE
     Indication: EUPHORIC MOOD
     Route: 065
     Dates: start: 201611
  5. ACETAMINOPHEN AND DIPHENHYDRAMINE HYDROCHLORIDE [Suspect]
     Active Substance: ACETAMINOPHEN\DIPHENHYDRAMINE HYDROCHLORIDE
     Indication: EUPHORIC MOOD
     Route: 065
     Dates: start: 201611
  6. CHLORPHENAMINE W/DEXTROMETHORPHAN/P [Suspect]
     Active Substance: ACETAMINOPHEN\CHLORPHENIRAMINE\DEXTROMETHORPHAN
     Indication: EUPHORIC MOOD
     Route: 065
     Dates: start: 201611
  7. APAP [Suspect]
     Active Substance: ACETAMINOPHEN
     Route: 065

REACTIONS (3)
  - Suicide attempt [Recovered/Resolved]
  - Drug abuse [Recovered/Resolved]
  - Intentional overdose [Recovered/Resolved]

NARRATIVE: CASE EVENT DATE: 201611
